FAERS Safety Report 6731988-1 (Version None)
Quarter: 2010Q2

REPORT INFORMATION
  Report Type: 
  Country: None (occurrence: None)
  Receive Date: 20100519
  Receipt Date: 20100506
  Transmission Date: 20101027
  Serious: Yes (Other)
  Sender: FDA-Public Use
  Company Number: PHHY2010JP29203

PATIENT

DRUGS (2)
  1. FLUVASTATIN [Suspect]
     Dosage: 30 MG, PER DAY
     Route: 048
  2. CILOSTAZOL [Suspect]
     Dosage: 200 MG, PER DAY
     Route: 048

REACTIONS (1)
  - CARDIAC FAILURE [None]
